FAERS Safety Report 13243021 (Version 1)
Quarter: 2017Q1

REPORT INFORMATION
  Report Type: Report from Study
  Country: BG (occurrence: BG)
  Receive Date: 20170217
  Receipt Date: 20170217
  Transmission Date: 20170428
  Serious: Yes (Other)
  Sender: FDA-Public Use
  Company Number: BG-EMD SERONO-8141665

PATIENT
  Age: 25 Year
  Sex: Male

DRUGS (1)
  1. REBIF [Suspect]
     Active Substance: INTERFERON BETA-1A
     Indication: MULTIPLE SCLEROSIS
     Dates: start: 20170127

REACTIONS (4)
  - Asphyxia [Unknown]
  - Influenza [Unknown]
  - Malaise [Unknown]
  - Bronchospasm [Unknown]

NARRATIVE: CASE EVENT DATE: 20170127
